FAERS Safety Report 5392245-1 (Version None)
Quarter: 2007Q3

REPORT INFORMATION
  Report Type: 
  Country: None (occurrence: None)
  Receive Date: 20070720
  Receipt Date: 20070713
  Transmission Date: 20080115
  Serious: No
  Sender: FDA-Public Use
  Company Number: FR-ELI_LILLY_AND_COMPANY-FR200707004547

PATIENT
  Sex: Male

DRUGS (1)
  1. CIALIS [Suspect]
     Route: 048

REACTIONS (1)
  - VISION BLURRED [None]
